FAERS Safety Report 16833478 (Version 3)
Quarter: 2020Q1

REPORT INFORMATION
  Report Type: Spontaneous
  Country: FR (occurrence: FR)
  Receive Date: 20190920
  Receipt Date: 20200106
  Transmission Date: 20200409
  Serious: Yes (Death, Congenital Anomaly, Other)
  Sender: FDA-Public Use
  Company Number: FR-MYLANLABS-2019M1087934

PATIENT

DRUGS (6)
  1. DEPAKINE CHRONO [Suspect]
     Active Substance: VALPROATE SODIUM
     Indication: PARTIAL SEIZURES
     Dosage: 1000 MILLIGRAM, QD
     Route: 064
     Dates: start: 20041130, end: 20050106
  2. URBANYL [Concomitant]
     Active Substance: CLOBAZAM
     Indication: EPILEPSY
     Dosage: UNK
     Route: 064
     Dates: start: 20040725, end: 20050106
  3. LAMOTRIGINE. [Suspect]
     Active Substance: LAMOTRIGINE
     Indication: PARTIAL SEIZURES
  4. URBANYL [Concomitant]
     Active Substance: CLOBAZAM
     Indication: PARTIAL SEIZURES
  5. LAMOTRIGINE. [Suspect]
     Active Substance: LAMOTRIGINE
     Indication: EPILEPSY
     Dosage: UNK
     Route: 064
     Dates: start: 20040725, end: 20040821
  6. DEPAKINE CHRONO [Suspect]
     Active Substance: VALPROATE SODIUM
     Indication: EPILEPSY
     Dosage: UNK
     Route: 064
     Dates: start: 20040822, end: 20050106

REACTIONS (4)
  - Mitral valve incompetence [Fatal]
  - Congenital aortic atresia [Fatal]
  - Foetal exposure during pregnancy [Recovered/Resolved]
  - Left ventricular hypertrophy [Fatal]

NARRATIVE: CASE EVENT DATE: 20050106
